FAERS Safety Report 10176310 (Version 2)
Quarter: 2014Q2

REPORT INFORMATION
  Report Type: Spontaneous
  Country: US (occurrence: None)
  Receive Date: 20140514
  Receipt Date: 20140529
  Transmission Date: 20141212
  Serious: Yes (Other)
  Sender: FDA-Public Use
  Company Number: KAD201405-000495

PATIENT
  Sex: 0

DRUGS (1)
  1. RIBAVIRIN [Suspect]
     Indication: RESPIRATORY SYNCYTIAL VIRUS INFECTION
     Dosage: TWICE DAILY, ORAL
     Route: 048

REACTIONS (3)
  - Mental status changes [None]
  - Immunodeficiency [None]
  - Off label use [None]
